FAERS Safety Report 5381869-3 (Version None)
Quarter: 2007Q3

REPORT INFORMATION
  Report Type: 
  Country: None (occurrence: None)
  Receive Date: 20070709
  Receipt Date: 20070628
  Transmission Date: 20080115
  Serious: Yes (Hospitalization)
  Sender: FDA-Public Use
  Company Number: ZA-ROCHE-504868

PATIENT
  Age: 17 Year
  Sex: Male

DRUGS (1)
  1. ROACCUTANE [Suspect]
     Indication: DRUG USE FOR UNKNOWN INDICATION
     Route: 048
     Dates: start: 20070501, end: 20070623

REACTIONS (2)
  - OVERDOSE [None]
  - SUICIDE ATTEMPT [None]
